FAERS Safety Report 14097930 (Version 1)
Quarter: 2017Q4

REPORT INFORMATION
  Report Type: Spontaneous
  Country: US (occurrence: US)
  Receive Date: 20171016
  Receipt Date: 20171016
  Transmission Date: 20180321
  Serious: No
  Sender: FDA-Public Use
  Company Number: US-AMGEN-USASP2016172014

PATIENT
  Age: 69 Year
  Sex: Female
  Weight: 59.41 kg

DRUGS (9)
  1. CALTRATE [Concomitant]
     Active Substance: CALCIUM CARBONATE
     Dosage: UNK UNK, BID
  2. CENTRUM [Concomitant]
     Active Substance: VITAMINS
  3. INFLUENZA [Concomitant]
     Active Substance: INFLUENZA VIRUS VACCINE
     Dosage: 0.5 ML, UNK
     Route: 030
     Dates: start: 20161212
  4. BABY ASPIRIN [Concomitant]
     Active Substance: ASPIRIN
     Dosage: 81 MG, QD
     Dates: start: 2006
  5. VITAMIN D2 [Concomitant]
     Active Substance: ERGOCALCIFEROL
     Dosage: UNK
     Dates: start: 2006
  6. SIMVASTATIN. [Concomitant]
     Active Substance: SIMVASTATIN
     Indication: LIPIDS INCREASED
     Dosage: 40 MG, QD
     Dates: start: 2014
  7. CALCIUM [Concomitant]
     Active Substance: CALCIUM
     Dosage: UNK UNK, BID
     Dates: start: 2006
  8. MVI [Concomitant]
     Active Substance: VITAMINS
     Dosage: UNK UNK, QD
     Dates: start: 2006
  9. PROLIA [Suspect]
     Active Substance: DENOSUMAB
     Indication: OSTEOPOROSIS POSTMENOPAUSAL
     Dosage: 60 MG, UNK
     Route: 058
     Dates: start: 20161121

REACTIONS (16)
  - Injection site bruising [Unknown]
  - Sinusitis [Unknown]
  - Neck pain [Unknown]
  - Periarthritis [Unknown]
  - Arthralgia [Unknown]
  - Abdominal pain [Unknown]
  - Flank pain [Unknown]
  - Myalgia [Unknown]
  - Temporomandibular joint syndrome [Recovered/Resolved]
  - Musculoskeletal chest pain [Unknown]
  - Kyphosis [Unknown]
  - Pain in extremity [Unknown]
  - Bone pain [Unknown]
  - Urinary tract infection [Unknown]
  - Injection site discolouration [Recovering/Resolving]
  - Oropharyngeal pain [Unknown]

NARRATIVE: CASE EVENT DATE: 20161123
